FAERS Safety Report 10670690 (Version 1)
Quarter: 2014Q4

REPORT INFORMATION
  Report Type: Spontaneous
  Country: CA (occurrence: None)
  Receive Date: 20141219
  Receipt Date: 20141219
  Transmission Date: 20150529
  Serious: No
  Sender: FDA-Public Use
  Company Number: A1072500A

PATIENT
  Age: 23 Year
  Sex: Female

DRUGS (3)
  1. PAROXETINE HYDROCHLORIDE. [Suspect]
     Active Substance: PAROXETINE HYDROCHLORIDE
     Indication: ILL-DEFINED DISORDER
     Dosage: 40MG UNKNOWN  ROUTE OF ADMINISTRATION
  2. TYLENOL COLD EXTRA STRENGTH TABLET (PARACETAMOL + CHLORPHENIRAMINE MALEATE + DEXTROMETHORPHAN HBR + PSEUDOEPHEDRINE HCI) [Suspect]
     Active Substance: ACETAMINOPHEN\CHLORPHENIRAMINE MALEATE\DEXTROMETHORPHAN\PSEUDOEPHEDRINE HYDROCHLORIDE
     Indication: ILL-DEFINED DISORDER
     Dosage: 12 TABLET ORAL
     Route: 048
  3. NORETHISTERONE [Concomitant]
     Active Substance: NORETHINDRONE

REACTIONS (8)
  - Drug interaction [None]
  - Intentional self-injury [None]
  - Serotonin syndrome [None]
  - Heart rate increased [None]
  - Product label issue [None]
  - Violence-related symptom [None]
  - Dyskinesia [None]
  - Tremor [None]
